FAERS Safety Report 9837501 (Version 2)
Quarter: 2014Q3

REPORT INFORMATION
  Report Type: Spontaneous
  Country: US (occurrence: US)
  Receive Date: 20140123
  Receipt Date: 20140724
  Transmission Date: 20150326
  Serious: No
  Sender: FDA-Public Use
  Company Number: US-009507513-1401USA010257

PATIENT
  Sex: Female
  Weight: 92.11 kg

DRUGS (1)
  1. NUVARING [Suspect]
     Active Substance: ETHINYL ESTRADIOL\ETONOGESTREL
     Indication: CONTRACEPTION
     Dosage: UNK
     Route: 067
     Dates: start: 20120515

REACTIONS (7)
  - Device deployment issue [Unknown]
  - Depression [Unknown]
  - Hypertension [Unknown]
  - Migraine [Unknown]
  - Neuralgia [Unknown]
  - Venous thrombosis [Unknown]
  - Pollakiuria [Not Recovered/Not Resolved]

NARRATIVE: CASE EVENT DATE: 20120522
